FAERS Safety Report 9267395 (Version 2)
Quarter: 2013Q2

REPORT INFORMATION
  Report Type: Report from Study
  Country: CN (occurrence: CN)
  Receive Date: 20130502
  Receipt Date: 20130605
  Transmission Date: 20140414
  Serious: Yes (Hospitalization)
  Sender: FDA-Public Use
  Company Number: CN-PFIZER INC-2013125680

PATIENT
  Age: 45 Year
  Sex: Male
  Weight: 68 kg

DRUGS (9)
  1. MEDROL [Suspect]
     Dosage: 48 MG, 1X/DAY
     Route: 048
     Dates: start: 20130124, end: 201305
  2. PANAX PSEUDO-GINSENG [Suspect]
     Dosage: UNK
     Dates: start: 20130318, end: 20130419
  3. ASPIRIN EC [Concomitant]
     Indication: PLATELET AGGREGATION
     Dosage: UNK
     Route: 048
     Dates: start: 20110418, end: 20130419
  4. RAMIPRIL [Concomitant]
     Indication: HYPERTENSION
     Dosage: UNK
     Route: 048
     Dates: start: 20120910
  5. RAMIPRIL [Concomitant]
     Indication: PROTEINURIA
  6. CALCIUM CARBONATE/CALCITRIOL/ZINC [Concomitant]
     Indication: MINERAL SUPPLEMENTATION
     Dosage: UNK
     Route: 048
     Dates: start: 20130118
  7. AMLODIPINE [Concomitant]
     Indication: BLOOD PRESSURE ABNORMAL
     Dosage: UNK
     Route: 048
     Dates: start: 20110418
  8. CARVEDILOL [Concomitant]
     Indication: BLOOD PRESSURE ABNORMAL
     Dosage: UNK
     Route: 048
     Dates: start: 20110418
  9. ATORVASTATIN CALCIUM [Concomitant]
     Indication: LIPIDS INCREASED
     Dosage: UNK
     Route: 048
     Dates: start: 20110418

REACTIONS (1)
  - Haemoptysis [Recovered/Resolved]
